FAERS Safety Report 4376872-6 (Version None)
Quarter: 2004Q2

REPORT INFORMATION
  Report Type: 
  Country: None (occurrence: None)
  Receive Date: 20040609
  Receipt Date: 20040226
  Transmission Date: 20050107
  Serious: Yes (Hospitalization)
  Sender: FDA-Public Use
  Company Number: US-SHR-03-014893

PATIENT
  Age: 42 Year
  Sex: Female

DRUGS (2)
  1. YASMIN [Suspect]
     Indication: HAEMORRHAGE
     Dosage: 1 TAB, 1X/D, ORAL
     Route: 048
     Dates: start: 20020901, end: 20030826
  2. ASPIRIN [Suspect]
     Indication: ANKLE FRACTURE
     Dates: start: 20030811, end: 20030826

REACTIONS (1)
  - THROMBOSIS [None]
